FAERS Safety Report 24173172 (Version 1)
Quarter: 2024Q3

REPORT INFORMATION
  Report Type: Spontaneous
  Country: US (occurrence: None)
  Receive Date: 20240804
  Receipt Date: 20240804
  Transmission Date: 20241017
  Serious: No
  Sender: Public
  Company Number: None

PATIENT
  Age: 68 Year
  Sex: Male
  Weight: 87.75 kg

DRUGS (10)
  1. LEQVIO [Suspect]
     Active Substance: INCLISIRAN SODIUM
     Indication: Low density lipoprotein increased
     Dosage: OTHER STRENGTH : 1;?OTHER QUANTITY : 1 INJECTION(S);?OTHER FREQUENCY : 1 SHOT, SIX MONTHS;?
     Route: 058
  2. Mouth guard for sleep apnea [Concomitant]
  3. VITAMIN B12 [Concomitant]
     Active Substance: CYANOCOBALAMIN
  4. Vitamin C [Concomitant]
  5. Multivitamin [Concomitant]
  6. BETA CAROTENE [Concomitant]
  7. Claritin [Concomitant]
  8. MELATONIN [Concomitant]
  9. 81 g Aspirin [Concomitant]
  10. Florastor probiotic [Concomitant]

REACTIONS (4)
  - Blood glucose increased [None]
  - Hyperhidrosis [None]
  - Fatigue [None]
  - Gait disturbance [None]

NARRATIVE: CASE EVENT DATE: 20240704
